FAERS Safety Report 5455960-7 (Version None)
Quarter: 2007Q3

REPORT INFORMATION
  Report Type: 
  Country: None (occurrence: None)
  Receive Date: 20070914
  Receipt Date: 20070907
  Transmission Date: 20080115
  Serious: Yes (Other)
  Sender: FDA-Public Use
  Company Number: CHPA2007US09464

PATIENT
  Age: 78 Year
  Sex: Male
  Weight: 77.1 kg

DRUGS (5)
  1. BENEFIBER W/ WHEAT DEXTRIN (NCH)(WHEAT DEXTRIN) POWDER [Suspect]
     Indication: CONSTIPATION
     Dosage: ORAL
     Route: 048
     Dates: start: 20070905, end: 20070907
  2. WARFARIN SODIUM [Concomitant]
  3. METFORMIN HCL [Concomitant]
  4. POTASSIUM CHLORIDE [Concomitant]
  5. CARDIAC THERAPY (NO INGREDIENTS/SUBSTANCES) [Concomitant]

REACTIONS (1)
  - HAEMATOCHEZIA [None]
